FAERS Safety Report 8480025-X (Version None)
Quarter: 2012Q2

REPORT INFORMATION
  Report Type: 
  Country: None (occurrence: None)
  Receive Date: 20120629
  Receipt Date: 20120619
  Transmission Date: 20120825
  Serious: Yes (Hospitalization)
  Sender: FDA-Public Use
  Company Number: US-ELI_LILLY_AND_COMPANY-US201206007321

PATIENT
  Sex: Female

DRUGS (19)
  1. OXYCODONE HCL [Concomitant]
     Dosage: UNK
  2. IMIPRAMINE HCL [Concomitant]
     Dosage: UNK
  3. CELEBREX [Concomitant]
     Dosage: UNK UNK, UNKNOWN
  4. JANUVIA [Concomitant]
     Dosage: UNK
  5. LEXAPRO [Concomitant]
     Dosage: UNK
  6. AMLODIPINE [Concomitant]
     Dosage: UNK
  7. LISINOPRIL [Concomitant]
     Dosage: UNK
  8. BACLOFEN [Concomitant]
     Dosage: UNK
  9. TEMAZEPAM [Concomitant]
     Dosage: UNK
  10. ZANAFLEX [Concomitant]
     Dosage: UNK
  11. FORTEO [Suspect]
     Indication: OSTEOPOROSIS
     Dosage: 20 UG, QD
     Dates: start: 20091101, end: 20100101
  12. SYNTHROID [Concomitant]
     Dosage: UNK
  13. SANCTURA [Concomitant]
     Dosage: UNK
  14. FORTEO [Suspect]
     Dosage: 20 UG, QD
     Dates: start: 20100201, end: 20100201
  15. LORAZEPAM [Concomitant]
     Dosage: UNK
  16. GILENYA [Concomitant]
     Dosage: UNK
  17. PLAVIX [Concomitant]
     Dosage: UNK
  18. FORTEO [Suspect]
     Dosage: 20 UG, QD
     Dates: start: 20101001, end: 20120401
  19. GABAPENTIN [Concomitant]
     Dosage: UNK

REACTIONS (8)
  - FALL [None]
  - URINARY TRACT INFECTION [None]
  - URINARY INCONTINENCE [None]
  - ANKLE FRACTURE [None]
  - RESPIRATORY TRACT INFECTION [None]
  - COGNITIVE DISORDER [None]
  - HOSPITALISATION [None]
  - BLOOD SODIUM DECREASED [None]
